FAERS Safety Report 7910500 (Version 2)
Quarter: 2013Q1

REPORT INFORMATION
  Report Type: Spontaneous
  Country: US (occurrence: None)
  Receive Date: 20110331
  Receipt Date: 20121116
  Transmission Date: 20140127
  Serious: Yes (Hospitalization, Disabling, Other)
  Sender: FDA-Public Use
  Company Number: JPI-P-014346

PATIENT
  Age: 58 Year
  Sex: Female

DRUGS (1)
  1. XYREM [Suspect]
     Route: 048
     Dates: start: 20021008

REACTIONS (6)
  - FALL [None]
  - BACK INJURY [None]
  - BACK PAIN [None]
  - INTERVERTEBRAL DISC DEGENERATION [None]
  - CONDITION AGGRAVATED [None]
  - MOBILITY DECREASED [None]
